FAERS Safety Report 23401579 (Version 5)
Quarter: 2024Q2

REPORT INFORMATION
  Report Type: Report from Study
  Country: US (occurrence: US)
  Receive Date: 20240115
  Receipt Date: 20240506
  Transmission Date: 20240716
  Serious: Yes (Other)
  Sender: FDA-Public Use
  Company Number: US-ABBVIE-5584259

PATIENT
  Age: 50 Year
  Sex: Female

DRUGS (2)
  1. RINVOQ [Suspect]
     Active Substance: UPADACITINIB
     Indication: Colitis ulcerative
     Dosage: LAST ADMIN DATE: AUG 2022.
     Route: 048
     Dates: start: 20220812
  2. RINVOQ [Suspect]
     Active Substance: UPADACITINIB
     Indication: Colitis ulcerative
     Dosage: INCREASED DOSAGE
     Route: 048
     Dates: start: 20220822

REACTIONS (10)
  - Spinal fusion surgery [Recovering/Resolving]
  - Vitamin D decreased [Recovered/Resolved]
  - Hypertension [Unknown]
  - Vitamin D decreased [Recovering/Resolving]
  - Diarrhoea [Unknown]
  - Blood cholesterol increased [Recovered/Resolved]
  - Headache [Unknown]
  - Blood pressure increased [Not Recovered/Not Resolved]
  - Blood cholesterol increased [Not Recovered/Not Resolved]
  - Blood cholesterol increased [Recovered/Resolved]

NARRATIVE: CASE EVENT DATE: 20231215
